FAERS Safety Report 7128991-9 (Version None)
Quarter: 2010Q4

REPORT INFORMATION
  Report Type: 
  Country: None (occurrence: None)
  Receive Date: 20101116
  Receipt Date: 20101108
  Transmission Date: 20110411
  Serious: Yes (Disabling, Other)
  Sender: FDA-Public Use
  Company Number: 747737

PATIENT
  Sex: Female

DRUGS (1)
  1. MARCAINE [Suspect]
     Indication: PROCEDURAL PAIN
     Dosage: CONTINUOUS INFUSION INTRA-ARTICULAR
     Route: 014
     Dates: start: 20071022

REACTIONS (3)
  - BONE CYST [None]
  - CHONDROLYSIS [None]
  - OSTEOARTHRITIS [None]
